FAERS Safety Report 23299445 (Version 7)
Quarter: 2024Q3

REPORT INFORMATION
  Report Type: Report from Study
  Country: US (occurrence: US)
  Receive Date: 20231215
  Receipt Date: 20240708
  Transmission Date: 20241016
  Serious: Yes (Hospitalization, Other)
  Sender: ACADIA PHARMACEUTICALS
  Company Number: US-ACADIA PHARMACEUTICALS INC.-ACA-2023-TRF-005374

PATIENT
  Age: 32 Year
  Sex: Female

DRUGS (7)
  1. DAYBUE [Suspect]
     Active Substance: TROFINETIDE
     Indication: Rett syndrome
     Dosage: 25 MILLILITER, BID VIA G-TUBE
  2. DAYBUE [Suspect]
     Active Substance: TROFINETIDE
     Dosage: 30 MILLILITER, BID VIA G-TUBE
  3. DAYBUE [Suspect]
     Active Substance: TROFINETIDE
     Dosage: 35 MILLILITER, BID VIA G-TUBE
     Dates: start: 20231206, end: 20231210
  4. DAYBUE [Suspect]
     Active Substance: TROFINETIDE
     Dosage: 35 MILLILITER, BID VIA G-TUBE
     Dates: start: 20231211
  5. DAYBUE [Suspect]
     Active Substance: TROFINETIDE
     Dosage: 30 MILLILIER BID VIA G-TUBE
  6. DAYBUE [Suspect]
     Active Substance: TROFINETIDE
     Dosage: 35 MILLILITER, BID VIA G-TUBE
  7. DAYBUE [Suspect]
     Active Substance: TROFINETIDE
     Dosage: 60MILLILITER, BID VIA G-TUBE
     Dates: end: 20240520

REACTIONS (17)
  - Pneumonia [Not Recovered/Not Resolved]
  - Clostridium difficile infection [Not Recovered/Not Resolved]
  - Nephrolithiasis [Not Recovered/Not Resolved]
  - Ill-defined disorder [Not Recovered/Not Resolved]
  - Renal stone removal [Not Recovered/Not Resolved]
  - Diarrhoea [Not Recovered/Not Resolved]
  - Dehydration [Not Recovered/Not Resolved]
  - Lung disorder [Not Recovered/Not Resolved]
  - Product dose omission issue [Not Recovered/Not Resolved]
  - Tachycardia [Not Recovered/Not Resolved]
  - Underdose [Not Recovered/Not Resolved]
  - Dyspnoea [Not Recovered/Not Resolved]
  - Eructation [Unknown]
  - Heart rate increased [Not Recovered/Not Resolved]
  - Diarrhoea [Not Recovered/Not Resolved]
  - Diarrhoea [Not Recovered/Not Resolved]
  - Diarrhoea [Not Recovered/Not Resolved]

NARRATIVE: CASE EVENT DATE: 20231210
